FAERS Safety Report 19497760 (Version 1)
Quarter: 2021Q3

REPORT INFORMATION
  Report Type: Report from Study
  Country: JP (occurrence: JP)
  Receive Date: 20210706
  Receipt Date: 20210706
  Transmission Date: 20211014
  Serious: Yes (Hospitalization, Other)
  Sender: FDA-Public Use
  Company Number: JP-ROCHE-2863314

PATIENT
  Age: 77 Year
  Sex: Male
  Weight: 51.2 kg

DRUGS (20)
  1. PROMAC [POLAPREZINC] [Concomitant]
     Active Substance: POLAPREZINC
     Indication: PROPHYLAXIS
     Dosage: 75 MILLIGRAM, BID
     Route: 048
     Dates: start: 20210517
  2. ZINC. [Concomitant]
     Active Substance: ZINC
     Indication: TASTE DISORDER
     Dosage: 25 MILLIGRAM
     Route: 048
     Dates: start: 20210517
  3. MYSLEE [Concomitant]
     Active Substance: ZOLPIDEM TARTRATE
     Indication: INSOMNIA
     Dosage: 10 MILLIGRAM
     Route: 048
     Dates: start: 20210517
  4. HEPAN [Concomitant]
     Indication: HYPOALBUMINAEMIA
     Dosage: 80 GRAM, QD
     Route: 048
     Dates: start: 20210517
  5. LIVACT [Concomitant]
     Active Substance: AMINO ACIDS, SOURCE UNSPECIFIED
     Indication: HYPOALBUMINAEMIA
     Dosage: 4.15 GRAM, TID
     Route: 048
     Dates: start: 20210517
  6. MAKYOKANSEKITO [Concomitant]
     Active Substance: CALCIUM SULFATE\HERBALS
     Indication: COUGH
     Dosage: 2.5 GRAM, QD
     Route: 048
     Dates: start: 20210517
  7. CALONAL [Concomitant]
     Active Substance: ACETAMINOPHEN
     Indication: OROPHARYNGEAL PAIN
     Dosage: UNK, PRN
     Route: 048
     Dates: start: 20210517
  8. MOHRUS L [Concomitant]
     Active Substance: KETOPROFEN
     Indication: BACK PAIN
     Dosage: 40 MILLIGRAM, QD
     Route: 061
     Dates: start: 20210517
  9. LINZESS [Concomitant]
     Active Substance: LINACLOTIDE
     Indication: COUGH
     Dosage: 0.25 MILLIGRAM, PRN
     Route: 048
     Dates: start: 20210517
  10. ATEZOLIZUMAB. [Suspect]
     Active Substance: ATEZOLIZUMAB
     Indication: HEPATOCELLULAR CARCINOMA
     Dosage: 1200 MILLIGRAM
     Route: 041
     Dates: start: 20210517, end: 20210621
  11. BEVACIZUMAB. [Suspect]
     Active Substance: BEVACIZUMAB
     Indication: HEPATOCELLULAR CARCINOMA
     Dosage: 843 MILLIGRAM
     Route: 065
     Dates: start: 20210517, end: 20210621
  12. BISOPROLOL FUMARATE. [Concomitant]
     Active Substance: BISOPROLOL FUMARATE
     Indication: HYPERTENSION
     Dosage: 2.5 MILLIGRAM, QD
     Route: 048
     Dates: start: 20210517
  13. FLUOROMETHOLONE. [Concomitant]
     Active Substance: FLUOROMETHOLONE
     Indication: ULCERATIVE KERATITIS
     Dosage: UNK, BID
     Route: 047
     Dates: start: 20210517
  14. LAGNOS [Concomitant]
     Indication: HEPATIC ENCEPHALOPATHY PROPHYLAXIS
     Dosage: 12 MILLIGRAM, TID
     Route: 048
     Dates: start: 20210517
  15. SPIRONOLACTONE. [Concomitant]
     Active Substance: SPIRONOLACTONE
     Indication: ASCITES
     Dosage: 25 MILLIGRAM, QD
     Route: 048
     Dates: start: 20210517
  16. SAMSCA [Concomitant]
     Active Substance: TOLVAPTAN
     Indication: ASCITES
     Dosage: 3.75 MILLIGRAM, QD
     Route: 048
     Dates: start: 20210517
  17. AZUNOL [SODIUM GUALENATE] [Concomitant]
     Active Substance: SODIUM GUALENATE
     Indication: PROPHYLAXIS
     Dosage: UNK
     Dates: start: 20210517
  18. SYMBICORT [Concomitant]
     Active Substance: BUDESONIDE\FORMOTEROL FUMARATE DIHYDRATE
     Indication: COUGH
     Dosage: UNK, BID
     Route: 055
     Dates: start: 20210517
  19. CLARITIN [Concomitant]
     Active Substance: LORATADINE
     Indication: COUGH
     Dosage: 10 MILLIGRAM, QD
     Route: 048
     Dates: start: 20210517
  20. HYALURONATE NA [Concomitant]
     Active Substance: HYALURONATE SODIUM
     Indication: DRY EYE
     Dosage: UNK, QID
     Route: 047
     Dates: start: 20210517

REACTIONS (2)
  - Gastrointestinal perforation [Not Recovered/Not Resolved]
  - Malaise [Unknown]

NARRATIVE: CASE EVENT DATE: 20210607
